FAERS Safety Report 20871440 (Version 1)
Quarter: 2022Q2

REPORT INFORMATION
  Report Type: Spontaneous
  Country: US (occurrence: None)
  Receive Date: 20220524
  Receipt Date: 20220524
  Transmission Date: 20220720
  Serious: Yes (Other)
  Sender: FDA-Public Use
  Company Number: None

PATIENT
  Age: 82 Year
  Sex: Female
  Weight: 54 kg

DRUGS (10)
  1. PAXLOVID [Suspect]
     Active Substance: NIRMATRELVIR\RITONAVIR
     Indication: COVID-19
     Dosage: FREQUENCY : DAILY;?
     Dates: start: 20220519, end: 20220522
  2. ACETAMINOPHEN [Concomitant]
     Active Substance: ACETAMINOPHEN
  3. ERGOCALCIFEROL [Concomitant]
     Active Substance: ERGOCALCIFEROL
  4. FERROUS SULFATE [Concomitant]
     Active Substance: FERROUS SULFATE
  5. FUROSEMIDE [Concomitant]
     Active Substance: FUROSEMIDE
  6. LIDOCAINE PATCH [Concomitant]
     Active Substance: LIDOCAINE
  7. LISINOPRIL [Concomitant]
     Active Substance: LISINOPRIL
  8. KCL 10meq tab [Concomitant]
  9. QUETIAPINE [Concomitant]
     Active Substance: QUETIAPINE
  10. TAMOXIFEN [Concomitant]
     Active Substance: TAMOXIFEN

REACTIONS (1)
  - Urticaria [None]

NARRATIVE: CASE EVENT DATE: 20220522
